FAERS Safety Report 15260926 (Version 4)
Quarter: 2018Q4

REPORT INFORMATION
  Report Type: Report from Study
  Country: BR (occurrence: BR)
  Receive Date: 20180809
  Receipt Date: 20181001
  Transmission Date: 20190204
  Serious: Yes (Hospitalization, Other)
  Sender: FDA-Public Use
  Company Number: BR-SA-2018SA187552

PATIENT
  Age: 3 Year
  Sex: Female
  Weight: 27.5 kg

DRUGS (2)
  1. ALGLUCOSIDASE ALFA [Suspect]
     Active Substance: ALGLUCOSIDASE ALFA
     Dosage: 3 VIALS, QOW
     Route: 041
     Dates: start: 20160105, end: 20180705
  2. ALGLUCOSIDASE ALFA [Suspect]
     Active Substance: ALGLUCOSIDASE ALFA
     Indication: GLYCOGEN STORAGE DISEASE TYPE II
     Dosage: 9 VIALS,QOW
     Route: 041
     Dates: start: 20160501

REACTIONS (18)
  - Pyrexia [Not Recovered/Not Resolved]
  - Coma [Not Recovered/Not Resolved]
  - Loss of consciousness [Not Recovered/Not Resolved]
  - Stoma site haemorrhage [Not Recovered/Not Resolved]
  - Poor venous access [Not Recovered/Not Resolved]
  - Pyrexia [Recovering/Resolving]
  - Vascular device infection [Not Recovered/Not Resolved]
  - Gastrostomy [Recovering/Resolving]
  - Tracheal inflammation [Recovering/Resolving]
  - Tracheostomy [Recovering/Resolving]
  - Nausea [Not Recovered/Not Resolved]
  - Renal impairment [Not Recovered/Not Resolved]
  - Stoma site erythema [Not Recovered/Not Resolved]
  - Stoma site discharge [Not Recovered/Not Resolved]
  - Complication associated with device [Not Recovered/Not Resolved]
  - Swelling [Not Recovered/Not Resolved]
  - Bacterial infection [Not Recovered/Not Resolved]
  - Catheter removal [Recovering/Resolving]

NARRATIVE: CASE EVENT DATE: 2018
